FAERS Safety Report 7982358-X (Version None)
Quarter: 2011Q4

REPORT INFORMATION
  Report Type: 
  Country: None (occurrence: None)
  Receive Date: 20111215
  Receipt Date: 20111206
  Transmission Date: 20120403
  Serious: Yes (Hospitalization, Other)
  Sender: FDA-Public Use
  Company Number: PHHY2011AU54559

PATIENT
  Sex: Female

DRUGS (3)
  1. EXJADE [Suspect]
     Dosage: 1500 MG, UNK
     Route: 048
  2. EXJADE [Suspect]
     Indication: IRON OVERLOAD
     Dosage: 1500 MG, UNK
     Dates: start: 20061201
  3. EXJADE [Suspect]
     Dosage: 1000 MG, UNK
     Route: 048
     Dates: start: 20080112

REACTIONS (5)
  - NAUSEA [None]
  - PHARYNGITIS [None]
  - SERUM FERRITIN INCREASED [None]
  - PNEUMONIA [None]
  - DIARRHOEA [None]
